FAERS Safety Report 7125584-4 (Version None)
Quarter: 2010Q4

REPORT INFORMATION
  Report Type: 
  Country: None (occurrence: None)
  Receive Date: 20101129
  Receipt Date: 20101119
  Transmission Date: 20110411
  Serious: Yes (Life-Threatening)
  Sender: FDA-Public Use
  Company Number: CA-BAXTER-2010BH028676

PATIENT
  Age: 3 Day
  Sex: Male

DRUGS (5)
  1. GAMMAGARD LIQUID [Suspect]
     Indication: THROMBOCYTOPENIA NEONATAL
     Route: 065
     Dates: start: 20101106, end: 20101106
  2. GAMMAGARD LIQUID [Suspect]
     Indication: OFF LABEL USE
     Route: 065
     Dates: start: 20101106, end: 20101106
  3. GAMMAGARD LIQUID [Suspect]
     Route: 065
     Dates: start: 20101103, end: 20101103
  4. GAMMAGARD LIQUID [Suspect]
     Route: 065
     Dates: start: 20101103, end: 20101103
  5. SODIUM CHLORIDE [Suspect]
     Indication: INTRAVENOUS CATHETER MANAGEMENT
     Route: 065
     Dates: start: 20101106

REACTIONS (3)
  - BLOOD PRESSURE DECREASED [None]
  - HEART RATE DECREASED [None]
  - HYPOXIA [None]
